FAERS Safety Report 4434247-5 (Version None)
Quarter: 2004Q3

REPORT INFORMATION
  Report Type: 
  Country: None (occurrence: None)
  Receive Date: 20040726
  Receipt Date: 20040427
  Transmission Date: 20050211
  Serious: No
  Sender: FDA-Public Use
  Company Number: USA040157584

PATIENT
  Age: 79 Year
  Sex: Female

DRUGS (5)
  1. FORTEO [Suspect]
     Indication: OSTEOPOROSIS
     Dosage: 20 UG/L DAY
     Dates: start: 20040122
  2. EVISTA [Suspect]
     Indication: OSTEOPOROSIS
     Dates: start: 20010101
  3. FOSAMAX [Concomitant]
  4. CALCIUM [Concomitant]
  5. MIACALCIN (CALCITRONIN, SALMON) [Concomitant]

REACTIONS (3)
  - DRUG INEFFECTIVE [None]
  - INJECTION SITE HAEMORRHAGE [None]
  - NAUSEA [None]
